FAERS Safety Report 12073936 (Version 1)
Quarter: 2016Q1

REPORT INFORMATION
  Report Type: Report from Study
  Country: BR (occurrence: BR)
  Receive Date: 20160212
  Receipt Date: 20160212
  Transmission Date: 20160526
  Serious: Yes (Other)
  Sender: FDA-Public Use
  Company Number: BR-ABBVIE-11P-020-0705310-00

PATIENT
  Sex: Female
  Weight: 77 kg

DRUGS (9)
  1. HUMIRA [Suspect]
     Active Substance: ADALIMUMAB
     Indication: RHEUMATOID ARTHRITIS
     Route: 058
     Dates: start: 20071201, end: 20110610
  2. METHOTREXATE [Concomitant]
     Active Substance: METHOTREXATE
     Indication: RHEUMATOID ARTHRITIS
     Route: 058
     Dates: start: 201012
  3. FOLIC ACID. [Concomitant]
     Active Substance: FOLIC ACID
     Indication: PRODUCT USED FOR UNKNOWN INDICATION
     Route: 048
     Dates: start: 201008
  4. ALENDRONATE SODIUM. [Concomitant]
     Active Substance: ALENDRONATE SODIUM
     Indication: OSTEOPOROSIS
     Route: 048
     Dates: start: 2007
  5. METHOTREXATE [Concomitant]
     Active Substance: METHOTREXATE
     Route: 030
     Dates: start: 2012
  6. METHOTREXATE [Concomitant]
     Active Substance: METHOTREXATE
     Indication: ANALGESIC THERAPY
  7. HUMIRA [Suspect]
     Active Substance: ADALIMUMAB
     Route: 058
     Dates: end: 20110125
  8. CALCIUM [Concomitant]
     Active Substance: CALCIUM
     Indication: BONE DISORDER
     Route: 048
  9. OS-CAL + D [Concomitant]
     Indication: OSTEOPOROSIS
     Route: 048

REACTIONS (4)
  - Arthralgia [Unknown]
  - Rheumatoid arthritis [Not Recovered/Not Resolved]
  - Foot deformity [Unknown]
  - Urine calcium increased [Unknown]
